FAERS Safety Report 5660136-4 (Version None)
Quarter: 2008Q1

REPORT INFORMATION
  Report Type: 
  Country: None (occurrence: None)
  Receive Date: 20080311
  Receipt Date: 20070926
  Transmission Date: 20080703
  Serious: No
  Sender: FDA-Public Use
  Company Number: US-BAYER-200713106BCC

PATIENT
  Age: 74 Year
  Sex: Male
  Weight: 73 kg

DRUGS (8)
  1. ALEVE [Suspect]
     Indication: BACK PAIN
     Dosage: TOTAL DAILY DOSE: 220 MG  UNIT DOSE: 220 MG
     Route: 048
     Dates: start: 20070922, end: 20070924
  2. ALEVE [Suspect]
     Indication: BACK PAIN
     Dosage: TOTAL DAILY DOSE: 440 MG  UNIT DOSE: 220 MG
     Route: 048
     Dates: start: 20070925
  3. VYTORIN [Concomitant]
  4. LISINOPRIL [Concomitant]
  5. KIRKLAND ASPIRIN [Concomitant]
  6. KIRKLAND MULTIVITAMIN [Concomitant]
  7. OMEPRAZOLE [Concomitant]
  8. FISH OIL [Concomitant]

REACTIONS (1)
  - DIZZINESS [None]
